FAERS Safety Report 11884917 (Version 1)
Quarter: 2015Q4

REPORT INFORMATION
  Report Type: Spontaneous
  Country: US (occurrence: None)
  Receive Date: 20151231
  Receipt Date: 20151231
  Transmission Date: 20160305
  Serious: No
  Sender: FDA-Public Use
  Company Number: None

PATIENT
  Age: 50 Year
  Sex: Male
  Weight: 80.4 kg

DRUGS (2)
  1. RIBAVIRIN. [Suspect]
     Active Substance: RIBAVIRIN
     Route: 048
     Dates: start: 20150929, end: 20151222
  2. DASABUVIR/OMBITASVIR/PARITAPREVIR/RITONAVIR [Suspect]
     Active Substance: DASABUVIR\OMBITASVIR\PARITAPREVIR\RITONAVIR
     Indication: HEPATITIS C
     Route: 048
     Dates: start: 20150929, end: 20151222

REACTIONS (3)
  - Hypersensitivity [None]
  - Rash [None]
  - Rash maculo-papular [None]

NARRATIVE: CASE EVENT DATE: 20151213
